FAERS Safety Report 11006152 (Version 1)
Quarter: 2015Q2

REPORT INFORMATION
  Report Type: Spontaneous
  Country: US (occurrence: US)
  Receive Date: 20150409
  Receipt Date: 20150409
  Transmission Date: 20150821
  Serious: No
  Sender: FDA-Public Use
  Company Number: US-ALLERGAN-1408010US

PATIENT
  Age: 55 Year
  Sex: Male

DRUGS (2)
  1. LATISSE [Suspect]
     Active Substance: BIMATOPROST
     Indication: HAIR GROWTH ABNORMAL
     Dosage: UNK
     Dates: end: 201403
  2. LATISSE [Suspect]
     Active Substance: BIMATOPROST
     Indication: GROWTH OF EYELASHES
     Dosage: UNK
     Dates: end: 201403

REACTIONS (4)
  - Hair growth abnormal [Unknown]
  - Erythema of eyelid [Not Recovered/Not Resolved]
  - Wrong technique in drug usage process [Unknown]
  - Ocular hyperaemia [Not Recovered/Not Resolved]
